FAERS Safety Report 9245120 (Version 2)
Quarter: 2013Q2

REPORT INFORMATION
  Report Type: Spontaneous
  Country: GB (occurrence: GB)
  Receive Date: 20130422
  Receipt Date: 20130528
  Transmission Date: 20140414
  Serious: Yes (Other)
  Sender: FDA-Public Use
  Company Number: GB-JNJFOC-20130405833

PATIENT
  Age: 57 Year
  Sex: Male
  Weight: 84.6 kg

DRUGS (8)
  1. XEPLION [Suspect]
     Indication: PSYCHOTIC DISORDER
     Route: 030
     Dates: end: 20130420
  2. XEPLION [Suspect]
     Indication: PSYCHOTIC DISORDER
     Route: 030
     Dates: start: 20130313
  3. XEPLION [Suspect]
     Indication: PSYCHOTIC DISORDER
     Route: 030
  4. XEPLION [Suspect]
     Indication: MAJOR DEPRESSION
     Route: 030
     Dates: start: 20130313
  5. XEPLION [Suspect]
     Indication: MAJOR DEPRESSION
     Route: 030
     Dates: end: 20130420
  6. XEPLION [Suspect]
     Indication: MAJOR DEPRESSION
     Route: 030
  7. DULOXETINE [Concomitant]
     Indication: DEPRESSION
     Route: 065
     Dates: start: 201212
  8. CETRIZINE [Concomitant]
     Indication: RASH
     Route: 065
     Dates: start: 201112

REACTIONS (2)
  - Off label use [Not Recovered/Not Resolved]
  - Parkinsonism [Recovered/Resolved]
